FAERS Safety Report 19239813 (Version 3)
Quarter: 2021Q3

REPORT INFORMATION
  Report Type: Report from Study
  Country: None (occurrence: US)
  Receive Date: 20210511
  Receipt Date: 20210813
  Transmission Date: 20211014
  Serious: Yes (Hospitalization, Other)
  Sender: FDA-Public Use
  Company Number: US-ABBVIE-21K-163-3898192-00

PATIENT
  Age: 75 Year
  Sex: Female
  Weight: 86.26 kg

DRUGS (4)
  1. ROSUVASTATIN. [Suspect]
     Active Substance: ROSUVASTATIN
     Indication: PRODUCT USED FOR UNKNOWN INDICATION
     Route: 065
  2. IMBRUVICA [Suspect]
     Active Substance: IBRUTINIB
     Indication: B-CELL SMALL LYMPHOCYTIC LYMPHOMA
     Route: 048
  3. IMBRUVICA [Suspect]
     Active Substance: IBRUTINIB
     Route: 048
     Dates: start: 202006
  4. IMBRUVICA [Suspect]
     Active Substance: IBRUTINIB
     Route: 048
     Dates: start: 202010

REACTIONS (16)
  - Hypoglycaemia [Recovered/Resolved]
  - Blood urea increased [Recovered/Resolved]
  - Blood urea decreased [Unknown]
  - Blood immunoglobulin M increased [Unknown]
  - Hypoglycaemia [Recovered/Resolved]
  - Muscular weakness [Unknown]
  - Depression [Unknown]
  - Blood immunoglobulin M increased [Unknown]
  - Urinary tract infection [Recovered/Resolved]
  - Abdominal pain upper [Unknown]
  - Renal disorder [Unknown]
  - Glomerular filtration rate decreased [Unknown]
  - Loss of consciousness [Unknown]
  - Blood creatinine abnormal [Unknown]
  - Glomerular filtration rate increased [Unknown]
  - Cholelithiasis [Unknown]

NARRATIVE: CASE EVENT DATE: 2021
